FAERS Safety Report 11334201 (Version 1)
Quarter: 2015Q3

REPORT INFORMATION
  Report Type: Spontaneous
  Country: US (occurrence: US)
  Receive Date: 20150803
  Receipt Date: 20150803
  Transmission Date: 20151125
  Serious: Yes (Other)
  Sender: FDA-Public Use
  Company Number: US-SA-2015SA071730

PATIENT
  Age: 78 Year
  Sex: Female

DRUGS (3)
  1. AMBIEN CR [Suspect]
     Active Substance: ZOLPIDEM TARTRATE
     Indication: INSOMNIA
     Route: 048
  2. AMBIEN [Suspect]
     Active Substance: ZOLPIDEM TARTRATE
     Indication: INSOMNIA
     Route: 048
  3. AMBIEN [Suspect]
     Active Substance: ZOLPIDEM TARTRATE
     Indication: INSOMNIA
     Route: 048
     Dates: start: 20150519

REACTIONS (12)
  - Hot flush [Unknown]
  - Mobility decreased [Unknown]
  - Tremor [Unknown]
  - Tension [Unknown]
  - Abasia [Unknown]
  - Insomnia [Unknown]
  - Chills [Unknown]
  - Drug withdrawal syndrome [Unknown]
  - Pain [Unknown]
  - Fatigue [Unknown]
  - Therapeutic response decreased [Unknown]
  - Incorrect drug administration duration [Unknown]
